FAERS Safety Report 20618696 (Version 1)
Quarter: 2022Q1

REPORT INFORMATION
  Report Type: Spontaneous
  Country: None (occurrence: JP)
  Receive Date: 20220322
  Receipt Date: 20220322
  Transmission Date: 20220423
  Serious: Yes (Death, Hospitalization, Other)
  Sender: FDA-Public Use
  Company Number: JP-Oxford Pharmaceuticals, LLC-2126978

PATIENT
  Age: 59 Year
  Sex: Male

DRUGS (1)
  1. LEVETIRACETAM [Suspect]
     Active Substance: LEVETIRACETAM
     Indication: Prophylaxis

REACTIONS (2)
  - Drug reaction with eosinophilia and systemic symptoms [Fatal]
  - Acute hepatic failure [Fatal]
